FAERS Safety Report 17001479 (Version 7)
Quarter: 2021Q3

REPORT INFORMATION
  Report Type: Spontaneous
  Country: PT (occurrence: PT)
  Receive Date: 20191106
  Receipt Date: 20210727
  Transmission Date: 20211014
  Serious: Yes (Other)
  Sender: FDA-Public Use
  Company Number: PT-009507513-1911PRT000210

PATIENT
  Age: 72 Year
  Sex: Male

DRUGS (1)
  1. POSACONAZOLE [Suspect]
     Active Substance: POSACONAZOLE
     Indication: KERATITIS FUNGAL
     Dosage: UNK
     Route: 048

REACTIONS (2)
  - Toxic encephalopathy [Recovering/Resolving]
  - Product use in unapproved indication [Unknown]
